FAERS Safety Report 19021015 (Version 2)
Quarter: 2021Q4

REPORT INFORMATION
  Report Type: Other
  Country: GB (occurrence: None)
  Receive Date: 20210317
  Receipt Date: 20211112
  Transmission Date: 20220304
  Serious: Yes (Other)
  Sender: FDA-Public Use
  Company Number: GB-ROCHE-2788886

PATIENT

DRUGS (4)
  1. OBINUTUZUMAB [Suspect]
     Active Substance: OBINUTUZUMAB
     Indication: Chronic lymphocytic leukaemia
     Dosage: O WAS GIVEN INTRAVENOUSLY AT 1000 MG ON DAYS 1/2 [SPLIT 100/900], 8, AND 15 OF CYCLE 1, AND DAY 1 OF
     Route: 042
  2. UBLITUXIMAB [Suspect]
     Active Substance: UBLITUXIMAB
     Indication: Chronic lymphocytic leukaemia
     Dosage: UBLITUXIMAB WAS ADMINISTERED INTRAVENOUSLY AT 900 MG ON DAYS 1/2 [SPLIT 150/750 MG], 8, AND 15 OF CY
     Route: 042
  3. CHLORAMBUCIL [Suspect]
     Active Substance: CHLORAMBUCIL
     Indication: Chronic lymphocytic leukaemia
     Dosage: CHLORAMBUCIL WAS GIVEN ORALLY AT 0.5 MG/KG ON DAY 1 AND 15 OF CYCLES 1 - 6. EACH CYCLE WAS 28 DAYS.
     Route: 048
  4. UMBRALISIB [Suspect]
     Active Substance: UMBRALISIB
     Indication: Chronic lymphocytic leukaemia
     Route: 048

REACTIONS (8)
  - Neutropenia [Unknown]
  - Thrombocytopenia [Unknown]
  - Diarrhoea [Unknown]
  - Infusion related reaction [Unknown]
  - Aspartate aminotransferase increased [Unknown]
  - Alanine aminotransferase increased [Unknown]
  - Colitis [Unknown]
  - Pneumonitis [Unknown]
